FAERS Safety Report 25003868 (Version 1)
Quarter: 2025Q1

REPORT INFORMATION
  Report Type: Spontaneous
  Country: US (occurrence: None)
  Receive Date: 20250221
  Receipt Date: 20250221
  Transmission Date: 20250408
  Serious: Yes (Death, Hospitalization)
  Sender: FDA-CTU
  Company Number: None

PATIENT
  Age: 56 Year
  Sex: Male

DRUGS (1)
  1. POMALYST [Suspect]
     Active Substance: POMALIDOMIDE
     Indication: Plasma cell myeloma
     Dosage: FREQUENCY : DAILY;?
     Route: 048
     Dates: start: 20240816, end: 20250111

REACTIONS (6)
  - Neutropenic sepsis [None]
  - Acute kidney injury [None]
  - Pelvic fracture [None]
  - Plasma cell myeloma refractory [None]
  - Plasma cell myeloma [None]
  - Amyloidosis [None]

NARRATIVE: CASE EVENT DATE: 20250111
